FAERS Safety Report 15548898 (Version 1)
Quarter: 2018Q4

REPORT INFORMATION
  Report Type: Report from Study
  Country: BR (occurrence: BR)
  Receive Date: 20181025
  Receipt Date: 20181025
  Transmission Date: 20190205
  Serious: Yes (Other)
  Sender: FDA-Public Use
  Company Number: BR-EMD SERONO-7257575

PATIENT
  Age: 22 Year
  Sex: Male

DRUGS (3)
  1. REBIF [Suspect]
     Active Substance: INTERFERON BETA-1A
     Route: 058
     Dates: start: 20180417
  2. REBIF [Suspect]
     Active Substance: INTERFERON BETA-1A
     Indication: RELAPSING-REMITTING MULTIPLE SCLEROSIS
     Route: 058
     Dates: start: 20110720
  3. VITAMIN D                          /00107901/ [Concomitant]
     Active Substance: ERGOCALCIFEROL
     Indication: PRODUCT USED FOR UNKNOWN INDICATION

REACTIONS (8)
  - Asthenopia [Not Recovered/Not Resolved]
  - Headache [Recovered/Resolved]
  - Stress [Unknown]
  - Dizziness [Not Recovered/Not Resolved]
  - Vision blurred [Recovered/Resolved]
  - Multiple sclerosis relapse [Unknown]
  - Head discomfort [Unknown]
  - Labyrinthitis [Unknown]

NARRATIVE: CASE EVENT DATE: 20131210
